FAERS Safety Report 5673098-0 (Version None)
Quarter: 2008Q2

REPORT INFORMATION
  Report Type: 
  Country: None (occurrence: None)
  Receive Date: 20080219
  Receipt Date: 20080104
  Transmission Date: 20081010
  Serious: No
  Sender: FDA-Public Use
  Company Number: TPA2008A00028

PATIENT
  Age: 39 Year
  Sex: Female
  Weight: 58.9676 kg

DRUGS (2)
  1. ROZEREM [Suspect]
     Indication: INSOMNIA
     Dosage: 8 MG, HS PRN, PER ORAL
     Route: 046
     Dates: start: 20071001, end: 20071001
  2. ROZEREM [Suspect]
     Indication: INSOMNIA
     Dosage: 8 MG, HS PRN, PER ORAL
     Route: 046
     Dates: end: 20080103

REACTIONS (4)
  - FATIGUE [None]
  - HEADACHE [None]
  - INITIAL INSOMNIA [None]
  - STRESS [None]
